FAERS Safety Report 7748756-4 (Version None)
Quarter: 2011Q3

REPORT INFORMATION
  Report Type: 
  Country: None (occurrence: None)
  Receive Date: 20110914
  Receipt Date: 20110903
  Transmission Date: 20111222
  Serious: Yes (Hospitalization, Other)
  Sender: FDA-Public Use
  Company Number: US-PAR PHARMACEUTICAL, INC-2011SCPR003214

PATIENT

DRUGS (1)
  1. PROPRANOLOL HYDROCHLORIDE [Suspect]
     Indication: MIGRAINE
     Dosage: 60 MG, DAILY
     Route: 065

REACTIONS (2)
  - PHAEOCHROMOCYTOMA [None]
  - CONGESTIVE CARDIOMYOPATHY [None]
